FAERS Safety Report 21224538 (Version 1)
Quarter: 2022Q3

REPORT INFORMATION
  Report Type: Spontaneous
  Country: US (occurrence: US)
  Receive Date: 20220817
  Receipt Date: 20220817
  Transmission Date: 20221027
  Serious: No
  Sender: FDA-Public Use
  Company Number: US-OTSUKA-2022_028898

PATIENT
  Sex: Female
  Weight: 115.53 kg

DRUGS (3)
  1. ABILIFY MAINTENA [Suspect]
     Active Substance: ARIPIPRAZOLE
     Indication: Bipolar disorder
     Dosage: 200 MG, EVERY MONTH
     Route: 065
  2. ABILIFY MAINTENA [Suspect]
     Active Substance: ARIPIPRAZOLE
     Dosage: 400 MG
     Route: 065
  3. ABILIFY [Suspect]
     Active Substance: ARIPIPRAZOLE
     Indication: Product used for unknown indication
     Dosage: UNK
     Route: 065

REACTIONS (7)
  - Feeling abnormal [Unknown]
  - Hypoaesthesia [Unknown]
  - Somnolence [Unknown]
  - Treatment noncompliance [Unknown]
  - Product dose omission issue [Unknown]
  - Underdose [Unknown]
  - Drug ineffective [Unknown]
